FAERS Safety Report 5404596-2 (Version None)
Quarter: 2007Q3

REPORT INFORMATION
  Report Type: 
  Country: None (occurrence: None)
  Receive Date: 20070713
  Receipt Date: 20070104
  Transmission Date: 20080115
  Serious: Yes (Hospitalization, Other)
  Sender: FDA-Public Use
  Company Number: US-JNJFOC-20060203117

PATIENT
  Age: 43 Year
  Sex: Female
  Weight: 108.8633 kg

DRUGS (5)
  1. ORTHO EVRA [Suspect]
     Indication: DRUG USE FOR UNKNOWN INDICATION
     Dates: start: 20021114, end: 20040301
  2. MOTRIN [Concomitant]
  3. DE-CONGESTINE TR [Concomitant]
  4. ADVAIR DISKUS 100/50 [Concomitant]
  5. ALBUTEROL [Concomitant]

REACTIONS (1)
  - PULMONARY EMBOLISM [None]
